FAERS Safety Report 7889222-5 (Version None)
Quarter: 2011Q4

REPORT INFORMATION
  Report Type: 
  Country: None (occurrence: None)
  Receive Date: 20111103
  Receipt Date: 20111026
  Transmission Date: 20120403
  Serious: Yes (Disabling, Other)
  Sender: FDA-Public Use
  Company Number: US-MERCK-1110USA04074

PATIENT
  Age: 71 Year
  Sex: Female
  Weight: 58 kg

DRUGS (11)
  1. CELEXA [Suspect]
     Route: 065
  2. ZANTAC [Suspect]
     Indication: BURN OESOPHAGEAL
     Route: 065
  3. ZANTAC [Suspect]
     Indication: GASTROOESOPHAGEAL REFLUX DISEASE
     Route: 065
  4. BENICAR [Suspect]
     Indication: HYPERTENSION
     Route: 065
     Dates: start: 20100101
  5. METOPROLOL [Suspect]
     Indication: HYPERTENSION
     Route: 065
     Dates: start: 20100101
  6. XANAX [Suspect]
     Indication: ANXIETY
     Route: 048
     Dates: start: 20100608
  7. PRINIVIL [Suspect]
     Indication: HYPERTENSION
     Route: 048
  8. ASPIRIN [Concomitant]
     Indication: CARDIAC DISORDER
     Route: 065
  9. NORVASC [Suspect]
     Indication: HYPERTENSION
     Route: 048
     Dates: start: 20100101
  10. PLAVIX [Suspect]
     Indication: THROMBOSIS
     Route: 065
  11. CATAPRES [Suspect]
     Indication: HYPERTENSION
     Route: 065
     Dates: start: 20100101

REACTIONS (14)
  - ANXIETY [None]
  - OESOPHAGEAL PAIN [None]
  - DRUG HYPERSENSITIVITY [None]
  - TONGUE DRY [None]
  - MUSCLE STRAIN [None]
  - DECREASED APPETITE [None]
  - HYPERTENSION [None]
  - DRY MOUTH [None]
  - HAIR TEXTURE ABNORMAL [None]
  - DRUG ABUSER [None]
  - ADVERSE EVENT [None]
  - PARAESTHESIA ORAL [None]
  - WEIGHT DECREASED [None]
  - ABDOMINAL DISCOMFORT [None]
